FAERS Safety Report 5657678-4 (Version None)
Quarter: 2008Q1

REPORT INFORMATION
  Report Type: 
  Country: None (occurrence: None)
  Receive Date: 20080310
  Receipt Date: 20080304
  Transmission Date: 20080703
  Serious: Yes (Hospitalization)
  Sender: FDA-Public Use
  Company Number: GR-BOEHRINGER INGELHEIM GMBH, GERMANY-2008-BP-03249RO

PATIENT
  Age: 18 Year
  Sex: Male

DRUGS (3)
  1. AZATHIOPRINE [Suspect]
     Indication: COLITIS ULCERATIVE
  2. MESALAMINE [Suspect]
     Indication: COLITIS ULCERATIVE
  3. PREDNISOLONE [Concomitant]
     Indication: EOSINOPHILIC PNEUMONIA

REACTIONS (2)
  - EOSINOPHILIC PNEUMONIA [None]
  - PULMONARY TOXICITY [None]
